FAERS Safety Report 4288727-6 (Version None)
Quarter: 2004Q1

REPORT INFORMATION
  Report Type: 
  Country: None (occurrence: None)
  Receive Date: 20040130
  Receipt Date: 20021231
  Transmission Date: 20041129
  Serious: Yes (Other)
  Sender: FDA-Public Use
  Company Number: 2002-100

PATIENT
  Sex: Female

DRUGS (1)
  1. METRONIDAZOLE [Suspect]
     Dosage: 1G BID; 740 MG BID; 2 G DAILY
     Dates: start: 20021001, end: 20021201

REACTIONS (2)
  - ASTHENIA [None]
  - NEUROPATHY PERIPHERAL [None]
